FAERS Safety Report 15928190 (Version 1)
Quarter: 2019Q1

REPORT INFORMATION
  Report Type: Spontaneous
  Country: US (occurrence: US)
  Receive Date: 20190206
  Receipt Date: 20190206
  Transmission Date: 20190417
  Serious: No
  Sender: FDA-Public Use
  Company Number: US-PFIZER INC-2019049401

PATIENT
  Age: 29 Year
  Sex: Female
  Weight: 49.89 kg

DRUGS (2)
  1. SILDENAFIL CITRATE. [Suspect]
     Active Substance: SILDENAFIL CITRATE
     Dosage: UNK
  2. REMODULIN [Concomitant]
     Active Substance: TREPROSTINIL
     Indication: PULMONARY ARTERIAL HYPERTENSION
     Dosage: 30 NG/KG/MIN
     Route: 042
     Dates: start: 20181009

REACTIONS (2)
  - Headache [Unknown]
  - Rash [Unknown]
